FAERS Safety Report 8350175-7 (Version None)
Quarter: 2012Q2

REPORT INFORMATION
  Report Type: 
  Country: None (occurrence: None)
  Receive Date: 20120510
  Receipt Date: 20120425
  Transmission Date: 20120825
  Serious: Yes (Hospitalization)
  Sender: FDA-Public Use
  Company Number: US-UCBSA-056739

PATIENT
  Age: 59 Year
  Sex: Female
  Weight: 56.7 kg

DRUGS (18)
  1. BACTRIM DS [Concomitant]
     Dosage: 800-160 MG 1 TABLET EVERY 12 HOURS
     Route: 048
     Dates: start: 20100301
  2. CRESTOR [Concomitant]
     Route: 048
  3. ASPIRIN [Concomitant]
     Dosage: DAILY DOSE: 81 MG
     Route: 048
  4. BACTRIM DS [Concomitant]
     Dosage: DAILY DOSE: 875 MG
     Route: 048
  5. HYOMAX DT [Concomitant]
     Route: 048
  6. ALIGN [Concomitant]
     Route: 048
  7. STEROIDS [Concomitant]
  8. ENTOCORT EC [Concomitant]
     Route: 048
  9. CERTOLIZUMAB PEGOL [Suspect]
     Indication: CROHN'S DISEASE
     Route: 058
     Dates: start: 20110621, end: 20110621
  10. TRIAMPTERENE [Concomitant]
     Indication: CROHN'S DISEASE
     Dosage: 37.8/25 DAILY
  11. DIOVAN [Concomitant]
     Indication: CROHN'S DISEASE
     Dosage: DAILY DOSE: 80 MG
     Route: 048
  12. NEXIUM [Concomitant]
     Route: 048
  13. CERTOLIZUMAB PEGOL [Suspect]
     Dates: start: 20110513, end: 20110528
  14. PLAVIX [Concomitant]
     Route: 048
  15. DEXILANT [Concomitant]
     Indication: CROHN'S DISEASE
  16. INDERAL LA [Concomitant]
     Indication: CROHN'S DISEASE
     Route: 048
  17. PREMARIN [Concomitant]
     Route: 048
  18. BUDESONIDE [Concomitant]
     Indication: CROHN'S DISEASE
     Dates: start: 20071201

REACTIONS (1)
  - ENTERITIS INFECTIOUS [None]
